FAERS Safety Report 9654403 (Version 2)
Quarter: 2014Q1

REPORT INFORMATION
  Report Type: Spontaneous
  Country: FR (occurrence: FR)
  Receive Date: 20131029
  Receipt Date: 20140106
  Transmission Date: 20141002
  Serious: Yes (Hospitalization)
  Sender: FDA-Public Use
  Company Number: PHHY2013FR120240

PATIENT
  Age: 34 Year
  Sex: Female

DRUGS (14)
  1. MYFORTIC [Suspect]
     Dosage: 720 MG, BID
     Route: 048
     Dates: start: 20130910
  2. MYFORTIC [Suspect]
     Dosage: 560 MG, BID
     Route: 048
     Dates: start: 20130917
  3. INEXIUM [Suspect]
     Dosage: 20 MG, QD
     Route: 048
     Dates: start: 20130910
  4. PROGRAF [Suspect]
     Indication: RENAL TRANSPLANT
     Dosage: 4 MG, BID
     Dates: start: 20130912
  5. ZANIDIP [Concomitant]
     Dosage: UNK
  6. IMOVANE [Concomitant]
     Dosage: UNK
  7. XANAX [Concomitant]
     Dosage: UNK
  8. OLMETEC [Concomitant]
     Dosage: UNK
  9. LASILIX [Concomitant]
     Dosage: UNK
  10. ARANESP [Concomitant]
     Dosage: UNK
  11. SOLUMEDROL [Concomitant]
     Indication: RENAL TRANSPLANT
     Dosage: 500 MG, UNK
     Dates: start: 20130909, end: 20130910
  12. SOLUMEDROL [Concomitant]
     Dosage: 250 MG, UNK
     Dates: start: 20130910, end: 20130911
  13. SOLUPRED [Concomitant]
     Indication: RENAL TRANSPLANT
     Dosage: 20 MG, UNK
     Dates: start: 20130912
  14. VANCOMYCINE [Concomitant]
     Indication: RENAL TRANSPLANT
     Dosage: 500 MG, UNK
     Dates: start: 20130909, end: 20130909

REACTIONS (1)
  - Hepatocellular injury [Unknown]
